FAERS Safety Report 11676525 (Version 1)
Quarter: 2015Q4

REPORT INFORMATION
  Report Type: Spontaneous
  Country: US (occurrence: US)
  Receive Date: 20151027
  Receipt Date: 20151027
  Transmission Date: 20160304
  Serious: No
  Sender: FDA-Public Use
  Company Number: US-ELI_LILLY_AND_COMPANY-US201008008029

PATIENT
  Sex: Female

DRUGS (13)
  1. METOPROLOL [Concomitant]
     Active Substance: METOPROLOL
     Indication: HYPERTENSION
     Dosage: 25 MG, DAILY (1/D)
  2. BABY ASPIRIN [Concomitant]
     Active Substance: ASPIRIN
  3. TRIAMTEREEN/HYDROCHLOOTTHIAZIDE [Concomitant]
     Indication: PERIPHERAL SWELLING
     Dosage: UNK, DAILY (1/D)
  4. FORTEO [Suspect]
     Active Substance: TERIPARATIDE
     Indication: OSTEOPOROSIS
     Dosage: 20 UG, DAILY (1/D)
     Dates: start: 200906
  5. ANTIHYPERTENSIVES [Concomitant]
     Active Substance: UNSPECIFIED INGREDIENT
     Indication: HYPERTENSION
  6. PREMARIN [Concomitant]
     Active Substance: ESTROGENS, CONJUGATED
     Dosage: 0.3 MG, DAILY (1/D)
  7. VITAMIN D [Concomitant]
     Active Substance: CHOLECALCIFEROL
  8. CALCIUM [Concomitant]
     Active Substance: CALCIUM
  9. MULTIVITAMIN [Concomitant]
     Active Substance: VITAMINS
  10. OMEGA 3 FISH OIL [Concomitant]
     Active Substance: FISH OIL\OMEGA-3 FATTY ACIDS
  11. FORTEO [Suspect]
     Active Substance: TERIPARATIDE
     Dosage: 20 UG, DAILY (1/D)
  12. REMERON [Concomitant]
     Active Substance: MIRTAZAPINE
  13. MINERALS NOS [Concomitant]
     Active Substance: MINERALS

REACTIONS (7)
  - Arthralgia [Not Recovered/Not Resolved]
  - Arthritis [Not Recovered/Not Resolved]
  - Weight increased [Not Recovered/Not Resolved]
  - Peripheral swelling [Not Recovered/Not Resolved]
  - Rhinorrhoea [Recovered/Resolved]
  - Hair growth abnormal [Not Recovered/Not Resolved]
  - Nail growth abnormal [Not Recovered/Not Resolved]
